FAERS Safety Report 17556815 (Version 1)
Quarter: 2020Q1

REPORT INFORMATION
  Report Type: Report from Study
  Country: JP (occurrence: JP)
  Receive Date: 20200318
  Receipt Date: 20200318
  Transmission Date: 20200409
  Serious: Yes (Death, Hospitalization)
  Sender: FDA-Public Use
  Company Number: JP-EISAI MEDICAL RESEARCH-EC-2020-071752

PATIENT
  Age: 62 Year
  Sex: Male
  Weight: 68 kg

DRUGS (11)
  1. LENVIMA [Suspect]
     Active Substance: LENVATINIB
     Indication: HEPATOCELLULAR CARCINOMA
     Route: 048
     Dates: start: 20181128, end: 20190123
  2. LENVIMA [Suspect]
     Active Substance: LENVATINIB
     Dosage: 8MG, 5 DAYS ON/2 DAYS OFF SCHEDULE
     Route: 048
     Dates: start: 20190513
  3. LIFOROS [Suspect]
     Active Substance: LACTULOSE
     Indication: AMMONIA INCREASED
     Route: 048
  4. LENVIMA [Suspect]
     Active Substance: LENVATINIB
     Route: 048
     Dates: start: 20190124, end: 20190130
  5. LOPERAMIDE HYDROCHLORIDE. [Concomitant]
     Active Substance: LOPERAMIDE HYDROCHLORIDE
  6. LIFOROS [Suspect]
     Active Substance: LACTULOSE
     Route: 048
  7. SPIRONOLACTONE. [Concomitant]
     Active Substance: SPIRONOLACTONE
  8. THYRADIN S [Concomitant]
     Active Substance: LEVOTHYROXINE SODIUM
  9. LENVIMA [Suspect]
     Active Substance: LENVATINIB
     Dosage: 8MG, 5 DAYS ON/2 DAYS OFF SCHEDULE
     Route: 048
     Dates: start: 20190131, end: 20190420
  10. MIYA-BM [Concomitant]
     Active Substance: CLOSTRIDIUM BUTYRICUM SPORES STRAIN M-55
  11. AZOSEMIDE [Concomitant]
     Active Substance: AZOSEMIDE

REACTIONS (2)
  - Malignant neoplasm progression [Fatal]
  - Oesophageal varices haemorrhage [Recovered/Resolved]

NARRATIVE: CASE EVENT DATE: 20190421
